FAERS Safety Report 22125150 (Version 4)
Quarter: 2025Q1

REPORT INFORMATION
  Report Type: Spontaneous
  Country: US (occurrence: US)
  Receive Date: 20230322
  Receipt Date: 20250110
  Transmission Date: 20250409
  Serious: No
  Sender: SANOFI AVENTIS
  Company Number: US-SA-SAC20230321000119

PATIENT
  Age: 79 Year
  Sex: Female

DRUGS (19)
  1. DUPIXENT [Suspect]
     Active Substance: DUPILUMAB
     Indication: Dermatitis atopic
     Dosage: 300 MG, QOW
     Route: 058
     Dates: start: 202208
  2. DUPIXENT [Suspect]
     Active Substance: DUPILUMAB
     Indication: Pruritus
  3. SALICYLIC ACID\TRIAMCINOLONE ACETONIDE [Concomitant]
     Active Substance: SALICYLIC ACID\TRIAMCINOLONE ACETONIDE
  4. LIPITOR [Concomitant]
     Active Substance: ATORVASTATIN CALCIUM
  5. MONTELUKAST [Concomitant]
     Active Substance: MONTELUKAST
  6. OMEPRAZOLE [Concomitant]
     Active Substance: OMEPRAZOLE
  7. SPIRIVA [Concomitant]
     Active Substance: TIOTROPIUM BROMIDE MONOHYDRATE
  8. ALBUTEROL [Concomitant]
     Active Substance: ALBUTEROL
  9. ASPIRIN [Concomitant]
     Active Substance: ASPIRIN
  10. CODEINE SULFATE [Concomitant]
     Active Substance: CODEINE SULFATE
  11. DICLOFENAC [Concomitant]
     Active Substance: DICLOFENAC
  12. DROXIDOPA [Concomitant]
     Active Substance: DROXIDOPA
  13. NITROGLYCERIN [Concomitant]
     Active Substance: NITROGLYCERIN
  14. FLUDROCORTISONE [Concomitant]
     Active Substance: FLUDROCORTISONE
  15. BISOPROLOL FUMARATE [Concomitant]
     Active Substance: BISOPROLOL FUMARATE
  16. CREON [Concomitant]
     Active Substance: PANCRELIPASE AMYLASE\PANCRELIPASE LIPASE\PANCRELIPASE PROTEASE
  17. INCRUSE ELLIPTA [Concomitant]
     Active Substance: UMECLIDINIUM BROMIDE
  18. LOSARTAN POTASSIUM [Concomitant]
     Active Substance: LOSARTAN POTASSIUM
  19. AMLODIPINE BESYLATE [Concomitant]
     Active Substance: AMLODIPINE BESYLATE

REACTIONS (15)
  - Visual impairment [Not Recovered/Not Resolved]
  - Dry skin [Not Recovered/Not Resolved]
  - Blood pressure fluctuation [Recovering/Resolving]
  - Skin fissures [Not Recovered/Not Resolved]
  - Skin swelling [Not Recovered/Not Resolved]
  - Diverticulum intestinal [Not Recovered/Not Resolved]
  - Pain [Not Recovered/Not Resolved]
  - Abdominal discomfort [Not Recovered/Not Resolved]
  - Pruritus [Not Recovered/Not Resolved]
  - Insomnia [Unknown]
  - Skin exfoliation [Unknown]
  - Eyelids pruritus [Not Recovered/Not Resolved]
  - Dermatitis atopic [Not Recovered/Not Resolved]
  - Therapeutic response shortened [Not Recovered/Not Resolved]
  - Product use in unapproved indication [Unknown]

NARRATIVE: CASE EVENT DATE: 20230201
